FAERS Safety Report 23124433 (Version 2)
Quarter: 2023Q4

REPORT INFORMATION
  Report Type: Report from Study
  Country: US (occurrence: US)
  Receive Date: 20231030
  Receipt Date: 20231123
  Transmission Date: 20240110
  Serious: Yes (Other)
  Sender: FDA-Public Use
  Company Number: US-KADMON-US-KAD-23-00017

PATIENT
  Age: 55 Year
  Sex: Male
  Weight: 108.3 kg

DRUGS (3)
  1. KD-033 [Suspect]
     Active Substance: KD-033
     Indication: Colorectal cancer
     Dosage: 200 UG/KG, QW
     Route: 042
     Dates: start: 20231016, end: 20231016
  2. ACETAMINOPHEN [Concomitant]
     Active Substance: ACETAMINOPHEN
     Indication: Pyrexia
     Dosage: 325 MG, 6ID
     Dates: end: 20231018
  3. CEFEPIME [Concomitant]
     Active Substance: CEFEPIME HYDROCHLORIDE
     Indication: Infection
     Dosage: 1 GRAM, Q12H
     Dates: end: 20231018

REACTIONS (1)
  - Cytokine release syndrome [Recovered/Resolved]

NARRATIVE: CASE EVENT DATE: 20231017
